FAERS Safety Report 9024937 (Version 2)
Quarter: 2013Q1

REPORT INFORMATION
  Report Type: Spontaneous
  Country: US (occurrence: None)
  Receive Date: 20121231
  Receipt Date: 20130129
  Transmission Date: 20140127
  Serious: Yes (Disabling, Other)
  Sender: FDA-Public Use
  Company Number: ACO_33531_2012

PATIENT
  Sex: Female
  Weight: 82.1 kg

DRUGS (7)
  1. AMPYRA (DALFAMPRIDINE) TABLET, 10MG [Suspect]
     Indication: GAIT DISTURBANCE
     Route: 048
     Dates: start: 20111101, end: 2012
  2. AMANTADINE (AMANTADINE HYDROCHLORIDE) [Concomitant]
  3. LEXAPRO (ESCITALOPRAM OXALATE) [Concomitant]
  4. SPIRONOLACTONE (SPIRONOLACTONE) [Concomitant]
  5. HYDROCHLOROTHIAZIDE (HYDROCHLOROTHIAZIDE) [Concomitant]
  6. CETIRIZINE (CETIRIZINE) [Concomitant]
  7. HYDROXYCUT (CHROMIUM PICOLINATE, EPHEDRA NOS, GARCINIA GUMMI-GUTTA, LEVOCARNITINE, PAULLINIA CUPANA, SALIX ALBA, SALIX PURPUREA) [Concomitant]

REACTIONS (6)
  - Abasia [None]
  - Eye disorder [None]
  - Movement disorder [None]
  - Balance disorder [None]
  - Gait disturbance [None]
  - Adverse drug reaction [None]
